FAERS Safety Report 9286165 (Version 1)
Quarter: 2013Q2

REPORT INFORMATION
  Report Type: Spontaneous
  Country: US (occurrence: None)
  Receive Date: 20130510
  Receipt Date: 20130510
  Transmission Date: 20140414
  Serious: Yes (Hospitalization)
  Sender: FDA-Public Use
  Company Number: None

PATIENT
  Age: 32 Year
  Sex: Male

DRUGS (4)
  1. AMOXICILLIN AND CLAVULANATE ACID [Suspect]
     Dates: start: 20111222, end: 20111230
  2. AMLODIPINE [Concomitant]
  3. LORAZEPAM [Concomitant]
  4. LISINOPRIL [Concomitant]

REACTIONS (4)
  - Liver injury [None]
  - Hepatitis cholestatic [None]
  - Pancreatitis [None]
  - Post procedural complication [None]
